FAERS Safety Report 4477750-4 (Version None)
Quarter: 2004Q3

REPORT INFORMATION
  Report Type: 
  Country: None (occurrence: None)
  Receive Date: 20040923
  Receipt Date: 20040805
  Transmission Date: 20050211
  Serious: No
  Sender: FDA-Public Use
  Company Number: USA040874588

PATIENT
  Age: 71 Year
  Sex: Female
  Weight: 75 kg

DRUGS (7)
  1. FORTEO [Suspect]
     Indication: OSTEOPOROSIS
     Dosage: 20 UG/1 IN THE MORNING
     Dates: start: 20040707
  2. EVISTA [Suspect]
     Indication: OSTEOPOROSIS
     Dosage: 60 MG/1 DAY
     Dates: start: 20010101, end: 20040706
  3. PREVACID [Concomitant]
  4. TRIAMTERENE AND HYDROCHLOROTHIAZIDE [Concomitant]
  5. LISINOPRIL [Concomitant]
  6. ASPIRIN [Concomitant]
  7. ACTONEL [Concomitant]

REACTIONS (9)
  - BODY HEIGHT DECREASED [None]
  - BONE DENSITY DECREASED [None]
  - CIRCADIAN RHYTHM SLEEP DISORDER [None]
  - CYSTITIS [None]
  - INITIAL INSOMNIA [None]
  - KYPHOSIS [None]
  - MUSCLE CRAMP [None]
  - NEPHROLITHIASIS [None]
  - SOMNOLENCE [None]
